FAERS Safety Report 6939483-1 (Version None)
Quarter: 2010Q3

REPORT INFORMATION
  Report Type: 
  Country: None (occurrence: None)
  Receive Date: 20100819
  Receipt Date: 20100805
  Transmission Date: 20110219
  Serious: Yes (Hospitalization, Other)
  Sender: FDA-Public Use
  Company Number: AUR-APL-2010-01987

PATIENT
  Age: 28 Year
  Sex: Female

DRUGS (1)
  1. RISPERIDONE [Suspect]
     Dosage: 90MG, TOOK 1 DOSE, ORAL
     Route: 048

REACTIONS (13)
  - APHONIA [None]
  - DYSPNOEA [None]
  - DYSTONIA [None]
  - FACIAL SPASM [None]
  - INTENTIONAL DRUG MISUSE [None]
  - LOCAL SWELLING [None]
  - MUSCLE SPASMS [None]
  - OVERDOSE [None]
  - SINUS TACHYCARDIA [None]
  - STRIDOR [None]
  - SWELLING FACE [None]
  - SWOLLEN TONGUE [None]
  - TONGUE SPASM [None]
